FAERS Safety Report 15074671 (Version 1)
Quarter: 2018Q2

REPORT INFORMATION
  Report Type: Spontaneous
  Country: US (occurrence: US)
  Receive Date: 20180627
  Receipt Date: 20180627
  Transmission Date: 20180711
  Serious: No
  Sender: FDA-Public Use
  Company Number: US-SAOL THERAPEUTICS-0700511199

PATIENT
  Sex: Female

DRUGS (3)
  1. MORPHINE [Suspect]
     Active Substance: MORPHINE
     Indication: SPINAL PAIN
     Dosage: 0.094 MG, \DAY
     Route: 037
  2. COMPOUNDED BACLOFEN [Suspect]
     Active Substance: BACLOFEN
     Indication: SPINAL PAIN
     Dosage: 0.78 ?G, \DAY
     Route: 037
  3. BUPIVACAINE. [Suspect]
     Active Substance: BUPIVACAINE
     Dosage: .125 MG, \DAY
     Route: 037

REACTIONS (6)
  - Implant site discharge [Unknown]
  - Off label use [Unknown]
  - Back pain [Unknown]
  - Device dislocation [Recovered/Resolved]
  - Unevaluable event [Unknown]
  - Fall [Unknown]
